FAERS Safety Report 13065024 (Version 1)
Quarter: 2016Q4

REPORT INFORMATION
  Report Type: Spontaneous
  Country: US (occurrence: US)
  Receive Date: 20161223
  Receipt Date: 20161223
  Transmission Date: 20170207
  Serious: Yes (Hospitalization)
  Sender: FDA-Public Use
  Company Number: None

PATIENT
  Age: 75 Year
  Sex: Female

DRUGS (1)
  1. CAPECITABINE. [Suspect]
     Active Substance: CAPECITABINE
     Route: 048
     Dates: start: 20161103, end: 20161124

REACTIONS (6)
  - Vision blurred [None]
  - Palmar-plantar erythrodysaesthesia syndrome [None]
  - Stomatitis [None]
  - Eye pruritus [None]
  - Visual impairment [None]
  - Diarrhoea [None]

NARRATIVE: CASE EVENT DATE: 20161203
